FAERS Safety Report 25803914 (Version 1)
Quarter: 2025Q3

REPORT INFORMATION
  Report Type: Spontaneous
  Country: CN (occurrence: CN)
  Receive Date: 20250915
  Receipt Date: 20250915
  Transmission Date: 20251020
  Serious: Yes (Other)
  Sender: B. BRAUN MEDICAL INC.
  Company Number: CN-B. Braun Medical Inc.-CN-BBM-202503517

PATIENT
  Age: 82 Year
  Sex: Female

DRUGS (1)
  1. CEFTRIAXONE [Suspect]
     Active Substance: CEFTRIAXONE
     Indication: Erysipelas

REACTIONS (3)
  - Autoimmune haemolytic anaemia [Recovered/Resolved]
  - Cerebral infarction [Recovered/Resolved]
  - Thrombosis [Recovered/Resolved]
